FAERS Safety Report 10350334 (Version 1)
Quarter: 2014Q3

REPORT INFORMATION
  Report Type: Spontaneous
  Country: US (occurrence: US)
  Receive Date: 20140730
  Receipt Date: 20140730
  Transmission Date: 20150326
  Serious: No
  Sender: FDA-Public Use
  Company Number: US-PFIZER INC-2014205142

PATIENT
  Age: 17 Year
  Sex: Female
  Weight: 70.8 kg

DRUGS (4)
  1. IBUPROFEN. [Concomitant]
     Active Substance: IBUPROFEN
     Indication: ENDOMETRIOSIS
     Dosage: UNK
  2. DEPO-PROVERA [Suspect]
     Active Substance: MEDROXYPROGESTERONE ACETATE
     Dosage: UNK
     Dates: start: 201406
  3. LUPRON DEPOT [Suspect]
     Active Substance: LEUPROLIDE ACETATE
     Indication: ENDOMETRIOSIS
     Dosage: 3.75 MG, ONCE MONTHLY
     Dates: start: 20140523
  4. NAPROXEN. [Concomitant]
     Active Substance: NAPROXEN
     Indication: ENDOMETRIOSIS
     Dosage: UNK

REACTIONS (2)
  - Wrong drug administered [Unknown]
  - Pelvic pain [Unknown]

NARRATIVE: CASE EVENT DATE: 20140523
